FAERS Safety Report 4519305-9 (Version None)
Quarter: 2004Q4

REPORT INFORMATION
  Report Type: 
  Country: None (occurrence: None)
  Receive Date: 20041206
  Receipt Date: 19950324
  Transmission Date: 20050328
  Serious: Yes (Disabling, Other)
  Sender: FDA-Public Use
  Company Number: US-GLAXOSMITHKLINE-B0184075A

PATIENT
  Age: 80 Year
  Sex: Male

DRUGS (2)
  1. CEFTAZIDIME [Suspect]
     Indication: OSTEOMYELITIS
     Dosage: 2G THREE TIMES PER DAY
     Route: 042
  2. CEFTAZIDIME [Suspect]
     Dosage: 1.5G THREE TIMES PER DAY
     Route: 042

REACTIONS (12)
  - AGITATION [None]
  - BLOOD CREATININE INCREASED [None]
  - CONFUSIONAL STATE [None]
  - DISORIENTATION [None]
  - EATING DISORDER [None]
  - INCOHERENT [None]
  - MYOCLONUS [None]
  - RENAL IMPAIRMENT [None]
  - SOMNOLENCE [None]
  - SPEECH DISORDER [None]
  - TOXIC INDUCED ENCEPHALOPATHY [None]
  - TREMOR [None]
